FAERS Safety Report 13498060 (Version 4)
Quarter: 2018Q1

REPORT INFORMATION
  Report Type: Report from Study
  Country: CN (occurrence: CN)
  Receive Date: 20170501
  Receipt Date: 20180208
  Transmission Date: 20180508
  Serious: Yes (Hospitalization)
  Sender: FDA-Public Use
  Company Number: CN-ROCHE-1903817

PATIENT
  Age: 62 Year
  Sex: Male
  Weight: 80 kg

DRUGS (16)
  1. DIPROPHYLLINE [Concomitant]
     Active Substance: DYPHYLLINE
     Indication: PERICARDIAL EFFUSION
     Route: 065
     Dates: start: 20170302, end: 20170302
  2. CEFOTIAM HYDROCHLORIDE [Concomitant]
     Active Substance: CEFOTIAM HYDROCHLORIDE
     Route: 065
     Dates: start: 20170302, end: 20170302
  3. MEGESTROL ACETATE. [Concomitant]
     Active Substance: MEGESTROL ACETATE
     Indication: ABDOMINAL DISTENSION
     Route: 065
     Dates: start: 20170302
  4. COMPOUND METHOXYPHENAMINE CAPSULE [Concomitant]
     Indication: COUGH
     Route: 065
     Dates: start: 20170309
  5. AMBROXOL HYDROCHLORIDE [Concomitant]
     Active Substance: AMBROXOL HYDROCHLORIDE
     Indication: COUGH
     Route: 065
     Dates: start: 20170306, end: 20170306
  6. COENZYME COMPLEX [Concomitant]
     Active Substance: UNSPECIFIED INGREDIENT
     Indication: NUTRITIONAL SUPPLEMENTATION
     Route: 065
     Dates: start: 20170306, end: 20170306
  7. FUROSEMIDE. [Concomitant]
     Active Substance: FUROSEMIDE
     Indication: POLYURIA
     Route: 065
     Dates: start: 20170306, end: 20170316
  8. LANSOPRAZOLE. [Concomitant]
     Active Substance: LANSOPRAZOLE
     Indication: PROPHYLAXIS OF NAUSEA AND VOMITING
     Route: 065
     Dates: start: 20170307, end: 20170316
  9. ATEZOLIZUMAB. [Suspect]
     Active Substance: ATEZOLIZUMAB
     Indication: NON-SMALL CELL LUNG CANCER
     Dosage: ON DAY 1 OF EACH 21-DAY CYCLE (AS PER PROTOCOL).?DATE OF LAST DOSE RECEIVED PRIOR TO THE EVENT: 23/F
     Route: 042
     Dates: start: 20170223
  10. HEPARIN SODIUM. [Concomitant]
     Active Substance: HEPARIN SODIUM
     Indication: THROMBOSIS PROPHYLAXIS
     Dosage: LOW-MOLECULAR-WEIGHT HEPARIN SODIUM
     Route: 065
     Dates: start: 20170306, end: 20170316
  11. AMIODARONE HYDROCHLORIDE. [Concomitant]
     Active Substance: AMIODARONE HYDROCHLORIDE
     Indication: SUPRAVENTRICULAR TACHYCARDIA
     Route: 065
     Dates: start: 20170306, end: 20170308
  12. AMBROXOL HYDROCHLORIDE [Concomitant]
     Active Substance: AMBROXOL HYDROCHLORIDE
     Route: 065
     Dates: start: 20170302, end: 20170302
  13. MAGNESIUM ISOGLYCYRRHIZINATE [Concomitant]
     Active Substance: MAGNESIUM ISOGLYCYRRHIZINATE
     Indication: NUTRITIONAL SUPPLEMENTATION
     Route: 065
     Dates: start: 20170306, end: 20170316
  14. TIOTROPIUM BROMIDE [Concomitant]
     Active Substance: TIOTROPIUM BROMIDE
     Route: 065
     Dates: start: 20170302
  15. QIANG LI PI PA LU [Concomitant]
     Indication: COUGH
     Route: 065
     Dates: start: 20170309
  16. ESTAZOLAM. [Concomitant]
     Active Substance: ESTAZOLAM
     Indication: INSOMNIA
     Route: 065
     Dates: start: 20170302

REACTIONS (1)
  - Pericardial effusion [Recovered/Resolved]

NARRATIVE: CASE EVENT DATE: 20170303
